FAERS Safety Report 8238044-4 (Version None)
Quarter: 2012Q1

REPORT INFORMATION
  Report Type: 
  Country: None (occurrence: None)
  Receive Date: 20120327
  Receipt Date: 20120320
  Transmission Date: 20120608
  Serious: Yes (Other)
  Sender: FDA-Public Use
  Company Number: US-GLAXOSMITHKLINE-A0952188A

PATIENT
  Age: 67 Year
  Sex: Female

DRUGS (5)
  1. ADVAIR DISKUS 100/50 [Suspect]
     Indication: ASTHMA
     Dosage: 1PUFF TWICE PER DAY
     Route: 055
  2. SINGULAIR [Concomitant]
  3. FLUTICASONE PROPIONATE [Concomitant]
  4. ZYRTEC [Concomitant]
  5. VITAMIN TAB [Concomitant]

REACTIONS (8)
  - PNEUMONIA [None]
  - SINUS OPERATION [None]
  - LUNG DISORDER [None]
  - PRODUCT QUALITY ISSUE [None]
  - COUGH [None]
  - SNEEZING [None]
  - DYSPHONIA [None]
  - HYPERSENSITIVITY [None]
